FAERS Safety Report 21490901 (Version 1)
Quarter: 2022Q4

REPORT INFORMATION
  Report Type: Spontaneous
  Country: US (occurrence: None)
  Receive Date: 20221020
  Receipt Date: 20221020
  Transmission Date: 20230112
  Serious: Yes (Hospitalization)
  Sender: FDA-Public Use
  Company Number: None

PATIENT
  Sex: Male

DRUGS (23)
  1. HUMIRA [Suspect]
     Active Substance: ADALIMUMAB
     Indication: Ankylosing spondylitis
     Dosage: OTHER QUANTITY : 40MG/0.4ML;?FREQUENCY : EVERY OTHER WEEK;?
     Route: 058
     Dates: start: 20220929
  2. ASPIRIN LOW TAB EC [Concomitant]
  3. ATORVASTATIN [Concomitant]
     Active Substance: ATORVASTATIN
  4. BUPROPN HCL TAB XL [Concomitant]
  5. CLONIDINE TAB [Concomitant]
  6. CYCLOBENZAPR TAB [Concomitant]
  7. CYMBALTA CAP [Concomitant]
  8. ENBREL [Concomitant]
     Active Substance: ETANERCEPT
  9. FLOMAX CAP [Concomitant]
  10. FLONASE ALGY SPR [Concomitant]
  11. HYDROXYZ HCL TAB [Concomitant]
  12. ISOSORB MONO TAB ER [Concomitant]
  13. LISINOPRIL [Concomitant]
     Active Substance: LISINOPRIL
  14. METOPROL SUC TAB ER [Concomitant]
  15. NABUMETONE TAB [Concomitant]
  16. NEURONTIN CAP [Concomitant]
  17. OMEPRAZOLE SODIUM [Concomitant]
     Active Substance: OMEPRAZOLE SODIUM
  18. PLAQUENIL [Concomitant]
     Active Substance: HYDROXYCHLOROQUINE SULFATE
  19. RELAFEN TAB [Concomitant]
  20. TRAZODONE TAB [Concomitant]
  21. VISTARIL CAP [Concomitant]
  22. VITAMIN D CAP [Concomitant]
  23. VITAMIN D3 CAP [Concomitant]

REACTIONS (2)
  - Surgery [None]
  - Therapy interrupted [None]
